FAERS Safety Report 8136387-6 (Version None)
Quarter: 2012Q1

REPORT INFORMATION
  Report Type: 
  Country: None (occurrence: None)
  Receive Date: 20120209
  Receipt Date: 20120131
  Transmission Date: 20120608
  Serious: Yes (Life-Threatening, Hospitalization, Other)
  Sender: FDA-Public Use
  Company Number: WAES 1111USA03785

PATIENT
  Age: 62 Year
  Sex: Male

DRUGS (2)
  1. PREDNISOLONE [Concomitant]
  2. ZOLINZA [Suspect]
     Indication: MYCOSIS FUNGOIDES
     Dosage: 400 MG/DAILY PO
     Route: 048
     Dates: start: 20111107, end: 20111115

REACTIONS (10)
  - DRY MOUTH [None]
  - DYSGEUSIA [None]
  - GLOSSODYNIA [None]
  - HEPATIC FUNCTION ABNORMAL [None]
  - SEPSIS [None]
  - EYELID OEDEMA [None]
  - TUMOUR ASSOCIATED FEVER [None]
  - DECREASED APPETITE [None]
  - RENAL IMPAIRMENT [None]
  - ALOPECIA [None]
